FAERS Safety Report 9834808 (Version 7)
Quarter: 2019Q3

REPORT INFORMATION
  Report Type: Spontaneous
  Country: US (occurrence: US)
  Receive Date: 20140122
  Receipt Date: 20190926
  Transmission Date: 20191005
  Serious: Yes (Hospitalization, Other)
  Sender: FDA-Public Use
  Company Number: US-PFIZER INC-2014017415

PATIENT
  Age: 76 Year
  Sex: Female
  Weight: 50.8 kg

DRUGS (30)
  1. METOPROLOL. [Concomitant]
     Active Substance: METOPROLOL
     Indication: BLOOD PRESSURE ABNORMAL
     Dosage: 100 MG, 1X/DAY
     Dates: start: 2014
  2. BENZONATATE. [Concomitant]
     Active Substance: BENZONATATE
     Indication: COUGH
     Dosage: 100 MG, AS NEEDED UP TO 3X/DAY
     Dates: start: 2013
  3. VITAMIN C [Concomitant]
     Active Substance: ASCORBIC ACID
     Dosage: 500 MG, 2X/DAY
  4. SUCRALFATE. [Concomitant]
     Active Substance: SUCRALFATE
     Indication: GASTRIC POLYPS
     Dosage: 1 MG, 2X/DAY
     Dates: start: 2000
  5. LASIX [Concomitant]
     Active Substance: FUROSEMIDE
     Indication: FLUID RETENTION
     Dosage: 40 MG, 1X/DAY
     Dates: start: 2001
  6. VAGIFEM [Concomitant]
     Active Substance: ESTRADIOL
     Dosage: 25MG; INSERT IN VAGINA AT LEAST 1 X A WEEK
     Route: 067
  7. BUDESONIDE. [Concomitant]
     Active Substance: BUDESONIDE
     Dosage: 0.05 MG, AS NEEDED
     Dates: start: 2012
  8. WOMEN^S CALCIUM [Concomitant]
     Dosage: 600 MG, 1X/DAY
  9. AZELASTINE FLONASE [Concomitant]
     Dosage: 205.5 /50MCG 1 SPRAY OF EACH IN EACH NOSTRIL
     Route: 045
  10. DILANTIN [Suspect]
     Active Substance: PHENYTOIN
     Indication: EPILEPSY
  11. PREMARIN [Suspect]
     Active Substance: ESTROGENS, CONJUGATED
     Dosage: 0.625 MG/G, DAILY (1 APPLICATOR VAG DAILY)
     Route: 067
  12. SYNTHROID [Concomitant]
     Active Substance: LEVOTHYROXINE SODIUM
     Indication: THYROID HORMONE REPLACEMENT THERAPY
     Dosage: 0.125 MG, 1X/DAY
     Dates: start: 1983
  13. BENZONATATE. [Concomitant]
     Active Substance: BENZONATATE
     Indication: NASAL CONGESTION
  14. PREMARIN [Suspect]
     Active Substance: ESTROGENS, CONJUGATED
     Indication: HYSTERECTOMY
     Dosage: 0.625MG SMALL AMT. RUBBED INTO VAGINAL AREA QD (30 GM TUBE)
     Route: 067
  15. DESIPRAMINE [Concomitant]
     Active Substance: DESIPRAMINE
     Indication: SLEEP DISORDER
     Dosage: 25 MG, 1X/DAY (AT 10:00 PM)
     Dates: start: 2012
  16. NASALCROM [Concomitant]
     Active Substance: CROMOLYN SODIUM
     Indication: NASAL CONGESTION
     Dosage: 2 DF, AS NEEDED
     Dates: start: 2013
  17. MILK OF MAGNESIA [Concomitant]
     Active Substance: MAGNESIUM HYDROXIDE
     Indication: CONSTIPATION
     Dosage: EVERY NIGHT
  18. PROTONIX [Suspect]
     Active Substance: PANTOPRAZOLE SODIUM
     Indication: GASTROOESOPHAGEAL REFLUX DISEASE
     Dosage: 40 MG, 2X/DAY
     Dates: start: 2004
  19. PREMARIN [Suspect]
     Active Substance: ESTROGENS, CONJUGATED
     Indication: VAGINAL DISORDER
     Dosage: 30 G, UNK
     Route: 067
  20. VAGIFEM [Concomitant]
     Active Substance: ESTRADIOL
     Dosage: 25 MG, 1X/DAY AS NEEDED
     Route: 067
  21. GABAPENTIN. [Concomitant]
     Active Substance: GABAPENTIN
     Dosage: 100 MG, UNK
  22. PROTONIX [Suspect]
     Active Substance: PANTOPRAZOLE SODIUM
     Indication: GASTROOESOPHAGEAL REFLUX DISEASE
  23. PREMARIN [Suspect]
     Active Substance: ESTROGENS, CONJUGATED
     Indication: UTERINE CANCER
     Dosage: 0.625 MG, 1X/DAY (USED EVERY AM APPLIED DAILY)
     Route: 067
     Dates: start: 1999
  24. DIAZEPAM. [Concomitant]
     Active Substance: DIAZEPAM
     Indication: ANXIETY
     Dosage: 0.05 MG 1/2, 4X/DAY
     Dates: start: 1960
  25. ALBUTEROL. [Concomitant]
     Active Substance: ALBUTEROL
     Indication: EMPHYSEMA
     Dosage: 0.05 %, AS NEEDED
     Dates: start: 2012
  26. DILANTIN [Suspect]
     Active Substance: PHENYTOIN
     Indication: SEIZURE
     Dosage: 100 MG, 3X/DAY
     Route: 048
     Dates: start: 1960
  27. LASIX [Concomitant]
     Active Substance: FUROSEMIDE
     Indication: BLOOD PRESSURE ABNORMAL
  28. LORATADINE. [Concomitant]
     Active Substance: LORATADINE
     Indication: DERMATITIS ALLERGIC
     Dosage: 10 MG, 2X/DAY
     Dates: start: 2010
  29. K-DUR [Concomitant]
     Active Substance: POTASSIUM CHLORIDE
     Indication: ELECTROLYTE SUBSTITUTION THERAPY
     Dosage: 20 MEQ, 1X/DAY
  30. PATADAY [Concomitant]
     Active Substance: OLOPATADINE HYDROCHLORIDE
     Dosage: 1 DROP RT. EYE DAILY

REACTIONS (7)
  - Back disorder [Recovered/Resolved]
  - Gait inability [Unknown]
  - Deep vein thrombosis [Unknown]
  - Wheelchair user [Unknown]
  - Peripheral arterial occlusive disease [Unknown]
  - Spinal stenosis [Unknown]
  - Pain [Recovering/Resolving]
